FAERS Safety Report 21771857 (Version 1)
Quarter: 2022Q4

REPORT INFORMATION
  Report Type: Spontaneous
  Country: DE (occurrence: None)
  Receive Date: 20221223
  Receipt Date: 20221223
  Transmission Date: 20230112
  Serious: Yes (Other)
  Sender: FDA-Public Use
  Company Number: DE-ROCHE-3248199

PATIENT
  Sex: Male

DRUGS (13)
  1. RITUXIMAB [Suspect]
     Active Substance: RITUXIMAB
     Indication: Diffuse large B-cell lymphoma
     Dosage: 1ST LINE, R-CHOP
     Route: 065
     Dates: start: 2010
  2. RITUXIMAB [Suspect]
     Active Substance: RITUXIMAB
     Dosage: 3RD LINE, R-BEAM
     Route: 065
     Dates: start: 2012
  3. RITUXIMAB [Suspect]
     Active Substance: RITUXIMAB
     Dosage: 4TH LINE, R-DHAP
     Route: 065
     Dates: start: 2013
  4. CYCLOPHOSPHAMIDE [Suspect]
     Active Substance: CYCLOPHOSPHAMIDE
     Indication: Diffuse large B-cell lymphoma
     Route: 065
     Dates: start: 2010
  5. DOXORUBICIN [Suspect]
     Active Substance: DOXORUBICIN
     Indication: Diffuse large B-cell lymphoma
     Route: 065
     Dates: start: 2010
  6. VINCRISTINE [Suspect]
     Active Substance: VINCRISTINE
     Indication: Diffuse large B-cell lymphoma
     Route: 065
     Dates: start: 2010
  7. PREDNISONE [Suspect]
     Active Substance: PREDNISONE
     Indication: Diffuse large B-cell lymphoma
     Route: 065
     Dates: start: 2010
  8. DEXAMETHASONE [Suspect]
     Active Substance: DEXAMETHASONE
     Indication: Diffuse large B-cell lymphoma
     Dosage: 4TH LINE, R-DHAP
     Route: 065
     Dates: start: 2013
  9. CYTARABINE [Suspect]
     Active Substance: CYTARABINE
     Indication: Diffuse large B-cell lymphoma
     Dosage: 4TH LINE, R-DHAP
     Route: 065
     Dates: start: 2013
  10. CISPLATIN [Suspect]
     Active Substance: CISPLATIN
     Indication: Diffuse large B-cell lymphoma
     Dosage: 4TH LINE, R-DHAP
     Route: 065
     Dates: start: 2013
  11. ETOPOSIDE [Suspect]
     Active Substance: ETOPOSIDE
     Indication: Diffuse large B-cell lymphoma
     Dosage: 3RD LINE, R-BEAM
     Route: 065
     Dates: start: 2012
  12. MELPHALAN [Suspect]
     Active Substance: MELPHALAN
     Indication: Diffuse large B-cell lymphoma
     Dosage: 3RD LINE, R-BEAM
     Route: 065
     Dates: start: 2012
  13. BICNU [Suspect]
     Active Substance: CARMUSTINE
     Indication: Diffuse large B-cell lymphoma
     Dosage: 3RD LINE, R-BEAM
     Route: 065
     Dates: start: 2012

REACTIONS (1)
  - Lymphoma [Not Recovered/Not Resolved]
